FAERS Safety Report 25993790 (Version 1)
Quarter: 2025Q4

REPORT INFORMATION
  Report Type: Spontaneous
  Country: EU (occurrence: EU)
  Receive Date: 20251104
  Receipt Date: 20251104
  Transmission Date: 20260117
  Serious: No
  Sender: MIRUM PHARMACEUTICALS
  Company Number: EU-MIRUM PHARMACEUTICALS, INC.-DE-MIR-25-00809

PATIENT

DRUGS (1)
  1. LIVMARLI [Suspect]
     Active Substance: MARALIXIBAT CHLORIDE
     Indication: Alagille syndrome
     Dosage: 780 MICROGRAM/KILOGRAM, QD
     Route: 065

REACTIONS (4)
  - Respiratory tract infection [Not Recovered/Not Resolved]
  - Transaminases increased [Unknown]
  - Pruritus [Unknown]
  - Bile acids increased [Unknown]
